FAERS Safety Report 7295714-2 (Version None)
Quarter: 2011Q1

REPORT INFORMATION
  Report Type: 
  Country: None (occurrence: None)
  Receive Date: 20110216
  Receipt Date: 20101213
  Transmission Date: 20110831
  Serious: No
  Sender: FDA-Public Use
  Company Number: US-ABBOTT-10P-163-0691763-00

PATIENT
  Sex: Male
  Weight: 68.554 kg

DRUGS (6)
  1. SIMCOR [Suspect]
     Indication: BLOOD CHOLESTEROL
     Dosage: 500/20 MG
     Dates: start: 20100901, end: 20101201
  2. GLIPIZIDE [Concomitant]
     Indication: DIABETES MELLITUS
     Dosage: UNKNOWN
  3. ALBUTEROL [Concomitant]
     Indication: ASTHMA
     Dosage: UNKNOWN
  4. FLONASE [Concomitant]
     Indication: ASTHMA
     Dosage: UNKNOWN
  5. SINGULAIR [Concomitant]
     Indication: ASTHMA
     Dosage: UNKNOWN
  6. GLUCOPHAGE [Concomitant]
     Indication: DIABETES MELLITUS

REACTIONS (1)
  - BLOOD GLUCOSE INCREASED [None]
